FAERS Safety Report 12498967 (Version 3)
Quarter: 2016Q3

REPORT INFORMATION
  Report Type: Spontaneous
  Country: IT (occurrence: IT)
  Receive Date: 20160627
  Receipt Date: 20160721
  Transmission Date: 20161109
  Serious: Yes (Hospitalization)
  Sender: FDA-Public Use
  Company Number: IT-ROCHE-1782998

PATIENT
  Age: 65 Year
  Sex: Female

DRUGS (3)
  1. PACLITAXEL. [Suspect]
     Active Substance: PACLITAXEL
     Indication: OVARIAN NEOPLASM
     Dosage: ^6 MG/ML -1 VIAL CONTAINING 30 MG, CYCLICAL
     Route: 042
     Dates: start: 20160405, end: 20160516
  2. AVASTIN [Suspect]
     Active Substance: BEVACIZUMAB
     Indication: OVARIAN NEOPLASM
     Dosage: 1 VIAL CONTAINING 400 MG, CYCLICAL
     Route: 042
     Dates: start: 20160405, end: 20160516
  3. CARBOPLATIN. [Suspect]
     Active Substance: CARBOPLATIN
     Indication: OVARIAN NEOPLASM
     Dosage: ^10 MG/ML -1 GLASS VIAL CONTAINING 60 ML,CYCLICAL
     Route: 042
     Dates: start: 20160405, end: 20160516

REACTIONS (4)
  - Anaemia [Recovered/Resolved]
  - Syncope [Recovered/Resolved]
  - Diarrhoea [Recovered/Resolved]
  - Thrombocytopenia [Recovered/Resolved]

NARRATIVE: CASE EVENT DATE: 20160409
